FAERS Safety Report 10451539 (Version 3)
Quarter: 2014Q4

REPORT INFORMATION
  Report Type: Report from Study
  Country: US (occurrence: US)
  Receive Date: 20140913
  Receipt Date: 20141219
  Transmission Date: 20150528
  Serious: Yes (Other)
  Sender: FDA-Public Use
  Company Number: US-ALEXION PHARMACEUTICALS INC-A200800755

PATIENT

DRUGS (1)
  1. SOLIRIS [Suspect]
     Active Substance: ECULIZUMAB
     Indication: PAROXYSMAL NOCTURNAL HAEMOGLOBINURIA
     Dosage: UNK
     Route: 042

REACTIONS (22)
  - Heart rate increased [Unknown]
  - Nervousness [Unknown]
  - Iron metabolism disorder [Unknown]
  - Drug hypersensitivity [Unknown]
  - Breast mass [Unknown]
  - Uterine leiomyoma [Unknown]
  - Nasopharyngitis [Unknown]
  - Dyspnoea [Unknown]
  - Headache [Unknown]
  - Transfusion [Unknown]
  - Portal vein thrombosis [Unknown]
  - Adenomyosis [Unknown]
  - Hepatic lesion [Unknown]
  - Pyrexia [Unknown]
  - Quality of life decreased [Unknown]
  - Jaundice [Unknown]
  - Aplastic anaemia [Unknown]
  - Pallor [Unknown]
  - Feeling abnormal [Unknown]
  - Drug ineffective [Unknown]
  - Haemoglobinuria [Unknown]
  - Fatigue [Unknown]

NARRATIVE: CASE EVENT DATE: 20141201
